FAERS Safety Report 5607763-8 (Version None)
Quarter: 2008Q1

REPORT INFORMATION
  Report Type: 
  Country: None (occurrence: None)
  Receive Date: 20080130
  Receipt Date: 20080118
  Transmission Date: 20080703
  Serious: Yes (Life-Threatening, Hospitalization)
  Sender: FDA-Public Use
  Company Number: US-ELI_LILLY_AND_COMPANY-US200801003863

PATIENT
  Age: 38 Year
  Sex: Female

DRUGS (15)
  1. HUMATROPE [Suspect]
     Indication: HYPOTHALAMO-PITUITARY DISORDER
     Dosage: 0.1 MG, EACH EVENING
     Dates: start: 20080104, end: 20080109
  2. CALTRATE [Concomitant]
     Dosage: UNK, UNKNOWN
     Dates: start: 20080104, end: 20080101
  3. LISINOPRIL [Concomitant]
     Indication: HYPERTENSION
     Dosage: UNK, UNKNOWN
     Dates: start: 20080104, end: 20080101
  4. BACTRIM [Concomitant]
     Dosage: UNK, UNKNOWN
     Dates: start: 20080104, end: 20080101
  5. VYTORIN [Concomitant]
     Dosage: UNK, UNKNOWN
  6. SINGULAIR [Concomitant]
     Dosage: UNK, UNKNOWN
  7. ZANTAC [Concomitant]
     Dosage: UNK, UNKNOWN
  8. ZYRTEC [Concomitant]
     Dosage: UNK, UNKNOWN
  9. ATENOLOL [Concomitant]
     Indication: HYPERTENSION
     Dosage: 25 MG, UNKNOWN
  10. PAXIL [Concomitant]
     Indication: DEPRESSION
     Dosage: 40 MG, UNKNOWN
  11. MORPHINE SULFATE [Concomitant]
     Indication: PAIN
     Dosage: 60 MG, 3/D
  12. SYNTHROID [Concomitant]
     Indication: HYPOTHYROIDISM
     Dosage: 0.112 MG, UNKNOWN
  13. CORTEF [Concomitant]
     Dosage: 30 MG, UNKNOWN
  14. NEURONTIN [Concomitant]
     Dosage: 300 MG, 3/D
  15. COMBIVENT [Concomitant]
     Dosage: UNK, UNKNOWN

REACTIONS (3)
  - BRAIN OEDEMA [None]
  - HYPERSENSITIVITY [None]
  - RENAL FAILURE [None]
